FAERS Safety Report 21293741 (Version 3)
Quarter: 2022Q4

REPORT INFORMATION
  Report Type: Spontaneous
  Country: US (occurrence: US)
  Receive Date: 20220905
  Receipt Date: 20221001
  Transmission Date: 20230113
  Serious: No
  Sender: FDA-Public Use
  Company Number: US-NOVARTISTESTPH-NVSC2022US195483

PATIENT
  Sex: Female

DRUGS (1)
  1. ALBUTEROL SULFATE [Suspect]
     Active Substance: ALBUTEROL SULFATE
     Indication: Bronchitis chronic
     Dosage: 2 DOSAGE FORM (2 PUFFS EVERY 6 HOURS)

REACTIONS (2)
  - Dyspnoea [Unknown]
  - Product delivery mechanism issue [Unknown]
